FAERS Safety Report 7476392-6 (Version None)
Quarter: 2011Q2

REPORT INFORMATION
  Report Type: 
  Country: None (occurrence: None)
  Receive Date: 20110512
  Receipt Date: 20110509
  Transmission Date: 20111010
  Serious: Yes (Other)
  Sender: FDA-Public Use
  Company Number: B0718409A

PATIENT
  Age: 63 Year
  Sex: Female
  Weight: 83 kg

DRUGS (8)
  1. AMLODIPINE BESYLATE [Concomitant]
     Dates: start: 20110414
  2. METFORMIN HCL [Concomitant]
     Dates: start: 20110414
  3. PERINDOPRIL ERBUMINE [Concomitant]
     Dates: start: 20110414
  4. ATORVASTATIN [Concomitant]
     Dates: start: 20110414
  5. PROPAFENONE HCL [Suspect]
     Route: 065
     Dates: start: 20110401
  6. CONJUGATED ESTROGENS [Concomitant]
     Dates: start: 20110414
  7. QUININE SULFATE [Concomitant]
     Dates: start: 20110414
  8. PANTOPRAZOLE [Concomitant]
     Dates: start: 20110414

REACTIONS (4)
  - HEADACHE [None]
  - JOINT SWELLING [None]
  - NAUSEA [None]
  - FATIGUE [None]
